FAERS Safety Report 4473833-3 (Version None)
Quarter: 2004Q4

REPORT INFORMATION
  Report Type: 
  Country: None (occurrence: None)
  Receive Date: 20041008
  Receipt Date: 20041008
  Transmission Date: 20050328
  Serious: Yes (Other)
  Sender: FDA-Public Use
  Company Number: None

PATIENT
  Age: 74 Year
  Sex: Male
  Weight: 44.3164 kg

DRUGS (3)
  1. CEFTRIAXONE [Suspect]
     Indication: INFECTION
     Dosage: 1 GRAM ,QD, IV
     Route: 042
     Dates: start: 20040913, end: 20040914
  2. FAMOTIDINE [Concomitant]
  3. NACL WITH KCL [Concomitant]

REACTIONS (1)
  - RASH PRURITIC [None]
